FAERS Safety Report 8835521 (Version 1)
Quarter: 2012Q4

REPORT INFORMATION
  Report Type: Report from Study
  Country: JP (occurrence: JP)
  Receive Date: 20121011
  Receipt Date: 20121011
  Transmission Date: 20130627
  Serious: Yes (Other)
  Sender: FDA-Public Use
  Company Number: JP-009507513-2012SP029620

PATIENT
  Age: 68 Year
  Sex: Female
  Weight: 52 kg

DRUGS (13)
  1. PEGINTERFERON ALFA-2B [Suspect]
     Indication: HEPATITIS C
     Dosage: 1.5 Microgram per kilogram, qw
     Route: 058
     Dates: start: 20120320, end: 20120827
  2. REBETOL [Suspect]
     Indication: HEPATITIS C
     Dosage: 600 mg, QD
     Route: 048
     Dates: start: 20120320, end: 20120408
  3. REBETOL [Suspect]
     Dosage: 400 mg, QD
     Route: 048
     Dates: start: 20120409, end: 20120430
  4. REBETOL [Suspect]
     Dosage: 200 mg, QD
     Route: 048
     Dates: start: 20120501, end: 20120513
  5. REBETOL [Suspect]
     Dosage: 400 UNK, UNK
     Route: 048
     Dates: start: 20120514, end: 20120624
  6. REBETOL [Suspect]
     Dosage: 200 UNK, UNK
     Route: 048
     Dates: start: 20120625, end: 20120708
  7. REBETOL [Suspect]
     Dosage: 400 UNK, UNK
     Route: 048
     Dates: start: 20120709, end: 20120827
  8. TELAVIC [Suspect]
     Indication: HEPATITIS C
     Dosage: 1500 mg, QD
     Route: 048
     Dates: start: 20120320, end: 20120610
  9. LIVALO [Concomitant]
     Indication: HYPERLIPIDAEMIA
     Dosage: 2 mg, qd
     Route: 048
  10. EPADEL S [Concomitant]
     Indication: HYPERLIPIDAEMIA
     Dosage: 1800 mg, qd
     Route: 048
  11. FEROTYM [Concomitant]
     Indication: IRON DEFICIENCY ANAEMIA
     Dosage: 100 mg, qd
     Route: 048
  12. CLARITIN REDITABS TABLETS 10 MG [Concomitant]
     Indication: PROPHYLAXIS
     Dosage: 10 mg, QD
     Route: 048
  13. MAGLAX (MAGNESIUM OXIDE) [Concomitant]
     Indication: CONSTIPATION
     Dosage: 990 mg, UNK
     Route: 048

REACTIONS (4)
  - Anaemia [Not Recovered/Not Resolved]
  - Anaemia [Not Recovered/Not Resolved]
  - Anaemia [Not Recovered/Not Resolved]
  - Rash [Recovered/Resolved]
